FAERS Safety Report 19794128 (Version 1)
Quarter: 2021Q3

REPORT INFORMATION
  Report Type: Spontaneous
  Country: US (occurrence: US)
  Receive Date: 20210907
  Receipt Date: 20210907
  Transmission Date: 20211014
  Serious: No
  Sender: FDA-Public Use
  Company Number: US-TEVA-2021-US-1943724

PATIENT
  Age: 70 Year
  Sex: Female

DRUGS (2)
  1. CARTIA XT [Suspect]
     Active Substance: DILTIAZEM HYDROCHLORIDE
     Dosage: DOSAGE FORM: CAPSULES ? EXTENDED / SUSTAINED RELEASE
     Route: 065
  2. CARTIA XT [Suspect]
     Active Substance: DILTIAZEM HYDROCHLORIDE
     Indication: HEART RATE IRREGULAR
     Dosage: DOSAGE FORM: CAPSULES ? EXTENDED / SUSTAINED RELEASE
     Route: 065
     Dates: start: 202107

REACTIONS (3)
  - Tachycardia [Unknown]
  - Nightmare [Unknown]
  - Therapeutic product effect decreased [Unknown]

NARRATIVE: CASE EVENT DATE: 2021
